FAERS Safety Report 5107089-5 (Version None)
Quarter: 2006Q3

REPORT INFORMATION
  Report Type: 
  Country: None (occurrence: None)
  Receive Date: 20060913
  Receipt Date: 20060829
  Transmission Date: 20061208
  Serious: Yes (Death)
  Sender: FDA-Public Use
  Company Number: 2006RR-03651

PATIENT
  Sex: Male
  Weight: 70 kg

DRUGS (7)
  1. SIMVASTATIN [Suspect]
     Indication: BLOOD CHOLESTEROL INCREASED
     Dosage: 20 MG, QD, ORAL
     Route: 048
     Dates: start: 20030101
  2. ASPIRIN [Concomitant]
  3. EZETIMIBE [Concomitant]
  4. LISINOPRIL [Concomitant]
  5. LORAZEPAM [Concomitant]
  6. PROPRANOLOL [Concomitant]
  7. ZOPICLONE [Concomitant]

REACTIONS (1)
  - RHABDOMYOLYSIS [None]
